FAERS Safety Report 17889207 (Version 1)
Quarter: 2020Q2

REPORT INFORMATION
  Report Type: Spontaneous
  Country: US (occurrence: US)
  Receive Date: 20200612
  Receipt Date: 20200612
  Transmission Date: 20200714
  Serious: No
  Sender: FDA-Public Use
  Company Number: US-HIKMA PHARMACEUTICALS USA INC.-US-H14001-19-04499

PATIENT
  Sex: Female

DRUGS (1)
  1. FLUTICASONE. [Suspect]
     Active Substance: FLUTICASONE
     Indication: PERENNIAL ALLERGY
     Route: 045
     Dates: start: 2016

REACTIONS (2)
  - Inappropriate schedule of product administration [Unknown]
  - Incorrect product administration duration [Unknown]
